FAERS Safety Report 8600346 (Version 4)
Quarter: 2014Q2

REPORT INFORMATION
  Report Type: Spontaneous
  Country: US (occurrence: US)
  Receive Date: 20120606
  Receipt Date: 20140401
  Transmission Date: 20141212
  Serious: Yes (Hospitalization, Disabling)
  Sender: FDA-Public Use
  Company Number: US-ASTRAZENECA-2012SE35604

PATIENT
  Age: 65 Year
  Sex: Female
  Weight: 83.9 kg

DRUGS (17)
  1. NEXIUM [Suspect]
     Indication: GASTRIC ULCER
     Route: 048
     Dates: start: 2003
  2. NEXIUM [Suspect]
     Indication: GASTRIC ULCER
     Route: 048
     Dates: start: 20050907
  3. NEXIUM [Suspect]
     Indication: GASTRIC ULCER
     Route: 048
     Dates: start: 20070205
  4. NEXIUM [Suspect]
     Indication: GASTRIC ULCER
     Route: 048
  5. NEXIUM [Suspect]
     Indication: GASTRIC ULCER
     Dosage: TAKE ONE CAPSULE TWICE A DAY BEFORE BREAKFAST AND DINNER
     Route: 048
     Dates: start: 20080616
  6. NEXIUM [Suspect]
     Indication: GASTRIC ULCER
     Route: 048
     Dates: start: 20110918
  7. NEXIUM [Suspect]
     Indication: GASTRIC ULCER
     Route: 048
     Dates: start: 20140203
  8. BONIVA [Concomitant]
     Route: 048
  9. METOPROLOL SUCCINATE [Concomitant]
     Route: 048
  10. WELCHOL [Concomitant]
     Route: 048
  11. ENBREL [Concomitant]
     Route: 048
  12. HYDROCODONE ACETAMIOPH [Concomitant]
     Dosage: 7.5-325 THREE TIMES A DAY AS NEED
     Route: 048
  13. VITAMIN D [Concomitant]
     Dosage: 800-1000 UNITS DAILY
  14. LIPITOR [Concomitant]
  15. HYDROCODONE [Concomitant]
  16. OMEPRAZOLE [Concomitant]
  17. ALEVE [Concomitant]

REACTIONS (15)
  - Pain [Unknown]
  - Musculoskeletal discomfort [Unknown]
  - Joint swelling [Unknown]
  - Osteoporosis [Unknown]
  - Cataract [Unknown]
  - Calcium deficiency [Unknown]
  - Arthritis [Unknown]
  - Fibromyalgia [Unknown]
  - Rheumatoid arthritis [Unknown]
  - Gallbladder disorder [Unknown]
  - Vitamin D deficiency [Unknown]
  - Osteopenia [Unknown]
  - Osteoarthritis [Unknown]
  - Intervertebral disc degeneration [Unknown]
  - Depression [Unknown]
